FAERS Safety Report 13662513 (Version 1)
Quarter: 2017Q2

REPORT INFORMATION
  Report Type: Spontaneous
  Country: US (occurrence: US)
  Receive Date: 20170617
  Receipt Date: 20170617
  Transmission Date: 20170830
  Serious: No
  Sender: FDA-Public Use
  Company Number: US-009507513-1706USA006400

PATIENT

DRUGS (6)
  1. GABAPENTIN. [Concomitant]
     Active Substance: GABAPENTIN
  2. ATENOLOL. [Concomitant]
     Active Substance: ATENOLOL
  3. FERROUS SULFATE. [Concomitant]
     Active Substance: FERROUS SULFATE
  4. BACLOFEN. [Concomitant]
     Active Substance: BACLOFEN
  5. ZEPATIER [Suspect]
     Active Substance: ELBASVIR\GRAZOPREVIR
     Indication: HEPATITIS C
     Dosage: 1 DF, QD, 50-100MG
     Route: 048
  6. HYDROCHLOROTHIAZIDE. [Concomitant]
     Active Substance: HYDROCHLOROTHIAZIDE

REACTIONS (5)
  - Cough [Recovered/Resolved]
  - Vomiting [Recovered/Resolved]
  - Pyrexia [Recovered/Resolved]
  - Drug dose omission [Unknown]
  - Influenza like illness [Recovered/Resolved]
